FAERS Safety Report 8986852 (Version 2)
Quarter: 2013Q1

REPORT INFORMATION
  Report Type: Spontaneous
  Country: US (occurrence: US)
  Receive Date: 20121227
  Receipt Date: 20130114
  Transmission Date: 20140127
  Serious: Yes (Hospitalization)
  Sender: FDA-Public Use
  Company Number: US-BIOGENIDEC-2012BI063080

PATIENT
  Age: 44 None
  Sex: Female

DRUGS (11)
  1. AVONEX [Suspect]
     Indication: MULTIPLE SCLEROSIS
     Route: 030
     Dates: start: 201109
  2. XANAX [Concomitant]
  3. RISPERDAL [Concomitant]
  4. SEROQUEL [Concomitant]
  5. DILANTIN [Concomitant]
     Indication: CONVULSION
  6. RESTORIL [Concomitant]
  7. PHENERGAN [Concomitant]
  8. IMITREX [Concomitant]
     Indication: MIGRAINE
  9. VITAMIN D [Concomitant]
  10. BACLOFEN [Concomitant]
  11. EXCEDRIN MIGRAINE [Concomitant]

REACTIONS (4)
  - Deep vein thrombosis [Unknown]
  - Fall [Recovered/Resolved]
  - Multiple sclerosis relapse [Unknown]
  - Pneumonia [Not Recovered/Not Resolved]
